FAERS Safety Report 4653374-0 (Version None)
Quarter: 2005Q2

REPORT INFORMATION
  Report Type: 
  Country: None (occurrence: None)
  Receive Date: 20050503
  Receipt Date: 20050419
  Transmission Date: 20051028
  Serious: Yes (Death, Hospitalization)
  Sender: FDA-Public Use
  Company Number: 200503461

PATIENT
  Age: 77 Year
  Sex: Female

DRUGS (1)
  1. BOTOX [Suspect]
     Indication: BLEPHAROSPASM
     Dosage: 30 UNITS PRN IM
     Route: 030
     Dates: start: 20021225, end: 20050121

REACTIONS (2)
  - ACCIDENTAL EXPOSURE [None]
  - CARDIAC DISORDER [None]
